FAERS Safety Report 6749066-4 (Version None)
Quarter: 2010Q2

REPORT INFORMATION
  Report Type: 
  Country: None (occurrence: None)
  Receive Date: 20100601
  Receipt Date: 20100519
  Transmission Date: 20101027
  Serious: Yes (Hospitalization, Disabling, Other)
  Sender: FDA-Public Use
  Company Number: US-SANOFI-AVENTIS-A03200801087

PATIENT
  Age: 49 Year
  Sex: Male
  Weight: 124.8 kg

DRUGS (16)
  1. AMBIEN [Suspect]
     Indication: INSOMNIA
     Dosage: UNIT DOSE: 10 MG
     Route: 048
     Dates: start: 20070221, end: 20070221
  2. LASIX [Concomitant]
     Dosage: UNIT DOSE: 80 MG
     Route: 048
  3. PIOGLITAZONE HYDROCHLORIDE [Concomitant]
     Dosage: UNIT DOSE: 30 MG
     Route: 048
  4. TRICOR [Concomitant]
     Dosage: UNIT DOSE: 145 MG
     Route: 048
  5. COREG [Concomitant]
     Dosage: UNIT DOSE: 25 MG
     Route: 048
  6. ZETIA [Concomitant]
     Dosage: UNIT DOSE: 10 MG
     Route: 048
  7. LANTUS [Concomitant]
     Dosage: DOSE TEXT: 35 U/AM + 40U/PM DOSE:30 UNIT(S)
     Route: 058
  8. CARDIZEM [Concomitant]
     Dosage: UNIT DOSE: 360 MG
     Route: 048
  9. BIAXIN [Concomitant]
     Dosage: UNIT DOSE: 500 MG
     Route: 048
  10. LIPITOR [Concomitant]
     Dosage: UNIT DOSE: 40 MG
     Route: 048
  11. SINGULAIR [Concomitant]
     Dosage: UNIT DOSE: 10 MG
     Route: 048
  12. ECOTRIN [Concomitant]
     Dosage: UNIT DOSE: 81 MG
     Route: 048
  13. ALL OTHER THERAPEUTIC PRODUCTS [Concomitant]
     Dosage: UNIT DOSE: 1 TEASPOON DOSE:1 TEASPOON(S)
     Route: 065
  14. NASONEX [Concomitant]
     Dosage: DOSE TEXT: 2 SPRAYS EACH NOSTRIL DAILY
     Route: 045
  15. ALL OTHER THERAPEUTIC PRODUCTS [Concomitant]
     Dosage: UNIT DOSE: 320 MG
     Route: 048
  16. APIDRA [Concomitant]
     Route: 065

REACTIONS (41)
  - ABNORMAL BEHAVIOUR [None]
  - ACUTE RESPIRATORY FAILURE [None]
  - AMNESIA [None]
  - ANAEMIA [None]
  - ANAPHYLACTIC SHOCK [None]
  - ASTHENIA [None]
  - BACK PAIN [None]
  - BALANCE DISORDER [None]
  - BLOOD CREATININE INCREASED [None]
  - BLOOD UREA INCREASED [None]
  - BURNING SENSATION [None]
  - CERVICOBRACHIAL SYNDROME [None]
  - COMA [None]
  - CONDITION AGGRAVATED [None]
  - CONFUSIONAL STATE [None]
  - DIZZINESS [None]
  - DRUG WITHDRAWAL CONVULSIONS [None]
  - ECCHYMOSIS [None]
  - FALL [None]
  - HALLUCINATION [None]
  - HUMERUS FRACTURE [None]
  - HYPOAESTHESIA [None]
  - INCONTINENCE [None]
  - INTERVERTEBRAL DISC PROTRUSION [None]
  - JOINT DISLOCATION [None]
  - JOINT INJURY [None]
  - MENTAL STATUS CHANGES [None]
  - METABOLIC ENCEPHALOPATHY [None]
  - NAUSEA [None]
  - NECK INJURY [None]
  - OSTEONECROSIS [None]
  - PARAESTHESIA [None]
  - RENAL FAILURE ACUTE [None]
  - SLEEP TALKING [None]
  - SOMNAMBULISM [None]
  - SOMNOLENCE [None]
  - SPINAL OSTEOARTHRITIS [None]
  - STAPHYLOCOCCAL INFECTION [None]
  - UNRESPONSIVE TO STIMULI [None]
  - VERTIGO [None]
  - WHITE BLOOD CELL COUNT INCREASED [None]
